FAERS Safety Report 14972714 (Version 3)
Quarter: 2018Q2

REPORT INFORMATION
  Report Type: Spontaneous
  Country: US (occurrence: US)
  Receive Date: 20180605
  Receipt Date: 20180620
  Transmission Date: 20180711
  Serious: No
  Sender: FDA-Public Use
  Company Number: US-PFIZER INC-2018227363

PATIENT
  Age: 48 Year
  Sex: Female
  Weight: 122.47 kg

DRUGS (1)
  1. LYRICA CR [Suspect]
     Active Substance: PREGABALIN
     Indication: NEUROPATHY PERIPHERAL
     Dosage: 165 MG, ONCE A DAY
     Route: 048
     Dates: start: 20180514

REACTIONS (1)
  - Gait inability [Unknown]
